FAERS Safety Report 8431467-X (Version None)
Quarter: 2012Q2

REPORT INFORMATION
  Report Type: 
  Country: None (occurrence: None)
  Receive Date: 20120613
  Receipt Date: 20120605
  Transmission Date: 20120825
  Serious: Yes (Hospitalization, Other)
  Sender: FDA-Public Use
  Company Number: US-ELI_LILLY_AND_COMPANY-US201206001878

PATIENT
  Sex: Male

DRUGS (4)
  1. HUMALOG [Suspect]
     Indication: TYPE 1 DIABETES MELLITUS
     Dosage: UNK UNK, UNKNOWN
     Route: 058
     Dates: end: 20110201
  2. HUMALOG [Suspect]
     Dosage: UNK, PRN
     Dates: start: 20110201
  3. LANTUS [Concomitant]
     Dosage: 10 U, EACH EVENING
  4. LANTUS [Concomitant]
     Dosage: 20 U, EACH EVENING

REACTIONS (9)
  - PROSTATIC OPERATION [None]
  - DEMENTIA [None]
  - GRAND MAL CONVULSION [None]
  - BLOOD GLUCOSE INCREASED [None]
  - CORONARY ARTERY OCCLUSION [None]
  - PROSTATIC HAEMORRHAGE [None]
  - TRANSURETHRAL PROSTATECTOMY [None]
  - APHASIA [None]
  - CONFUSIONAL STATE [None]
